FAERS Safety Report 4496100-0 (Version None)
Quarter: 2004Q4

REPORT INFORMATION
  Report Type: 
  Country: None (occurrence: None)
  Receive Date: 20041108
  Receipt Date: 20041104
  Transmission Date: 20050328
  Serious: Yes (Death)
  Sender: FDA-Public Use
  Company Number: CH-MERCK-0411CHE00012

PATIENT
  Age: 79 Year
  Sex: Female

DRUGS (1)
  1. VIOXX [Suspect]
     Route: 048
     Dates: start: 20030201, end: 20031224

REACTIONS (1)
  - CARDIAC FAILURE [None]
